FAERS Safety Report 24579995 (Version 1)
Quarter: 2024Q4

REPORT INFORMATION
  Report Type: Report from Study
  Country: AU (occurrence: AU)
  Receive Date: 20241105
  Receipt Date: 20241105
  Transmission Date: 20250114
  Serious: Yes (Other)
  Sender: SERVIER
  Company Number: AU-SERVIER-S24013748

PATIENT

DRUGS (1)
  1. VORASIDENIB [Suspect]
     Active Substance: VORASIDENIB
     Indication: Astrocytoma
     Dosage: UNK
     Route: 048
     Dates: start: 202410

REACTIONS (1)
  - Electrocardiogram QT prolonged [Unknown]
